FAERS Safety Report 10203478 (Version 1)
Quarter: 2014Q2

REPORT INFORMATION
  Report Type: Other
  Country: DE (occurrence: DE)
  Receive Date: 20140529
  Receipt Date: 20140529
  Transmission Date: 20141212
  Serious: Yes (Death)
  Sender: FDA-Public Use
  Company Number: DE-LUPIN PHARMACEUTICALS INC.-2014-01054

PATIENT
  Age: 40 Year
  Sex: Female
  Weight: 47 kg

DRUGS (12)
  1. LAMOTRIGINE [Suspect]
     Indication: PRODUCT USED FOR UNKNOWN INDICATION
     Dosage: ONE TABLET IN THE MORNING, ONE AND HALF A TABLET IN THE EVENING
     Route: 065
  2. LAMOTRIGINE [Suspect]
     Dosage: ONE TABLET IN THE MORNING, TWO TABLETS IN THE EVENING
     Route: 065
  3. LAMOTRIGINE [Suspect]
     Dosage: ONE AND HALF A TABLET IN THE MORNING, TWO TABLETS IN THE EVENING
     Route: 065
  4. LAMOTRIGINE [Suspect]
     Route: 065
  5. CITALOPRAM [Suspect]
     Indication: PRODUCT USED FOR UNKNOWN INDICATION
     Route: 065
  6. CAPTAN [Suspect]
     Indication: PRODUCT USED FOR UNKNOWN INDICATION
     Route: 065
  7. VIMPAT 100MG [Suspect]
     Indication: PRODUCT USED FOR UNKNOWN INDICATION
     Dosage: ONE TABLET IN THE MORNING, ONE AND HALF A TABLET IN THE EVENING
     Route: 065
  8. DIAMOX [Suspect]
     Indication: PRODUCT USED FOR UNKNOWN INDICATION
     Route: 065
  9. KEPPRA [Suspect]
     Indication: PRODUCT USED FOR UNKNOWN INDICATION
     Dosage: ONE AND HALF A TABLET IN THE MORNING, ONE AND HALF A TABLET IN THE EVENING
     Route: 065
  10. VALDOXAN 25MG [Suspect]
     Indication: PRODUCT USED FOR UNKNOWN INDICATION
     Route: 065
  11. CLOBAZAM [Suspect]
     Indication: PRODUCT USED FOR UNKNOWN INDICATION
     Route: 065
  12. LORAZEPAM [Suspect]
     Indication: PRODUCT USED FOR UNKNOWN INDICATION
     Route: 065

REACTIONS (3)
  - Toxicity to various agents [Fatal]
  - Incorrect dose administered [None]
  - Pulmonary oedema [None]
